FAERS Safety Report 11647994 (Version 1)
Quarter: 2015Q4

REPORT INFORMATION
  Report Type: Spontaneous
  Country: DE (occurrence: DE)
  Receive Date: 20151021
  Receipt Date: 20151021
  Transmission Date: 20160304
  Serious: Yes (Other)
  Sender: FDA-Public Use
  Company Number: DE-ABBVIE-15K-062-1483850-00

PATIENT
  Sex: Male

DRUGS (1)
  1. HUMIRA [Suspect]
     Active Substance: ADALIMUMAB
     Indication: PSORIASIS
     Route: 058

REACTIONS (4)
  - Hepatitis A antibody positive [Not Recovered/Not Resolved]
  - Rash papular [Not Recovered/Not Resolved]
  - Psoriasis [Not Recovered/Not Resolved]
  - Hepatitis A [Not Recovered/Not Resolved]
